FAERS Safety Report 23916595 (Version 1)
Quarter: 2024Q2

REPORT INFORMATION
  Report Type: Spontaneous
  Country: US (occurrence: US)
  Receive Date: 20240529
  Receipt Date: 20240529
  Transmission Date: 20240716
  Serious: Yes (Other)
  Sender: FDA-Public Use
  Company Number: US-APELLIS-2024-APL-0000150

PATIENT

DRUGS (2)
  1. SYFOVRE [Suspect]
     Active Substance: PEGCETACOPLAN
     Indication: Product used for unknown indication
  2. EYLEA [Concomitant]
     Active Substance: AFLIBERCEPT
     Indication: Product used for unknown indication
     Route: 047
     Dates: start: 20240418

REACTIONS (2)
  - Bacterial endophthalmitis [Recovering/Resolving]
  - Visual acuity reduced [Unknown]

NARRATIVE: CASE EVENT DATE: 20240421
